FAERS Safety Report 6696784-2 (Version None)
Quarter: 2010Q2

REPORT INFORMATION
  Report Type: 
  Country: None (occurrence: None)
  Receive Date: 20100426
  Receipt Date: 20100414
  Transmission Date: 20101027
  Serious: Yes (Death, Hospitalization, Other)
  Sender: FDA-Public Use
  Company Number: US-PFIZER INC-2010047774

PATIENT
  Sex: Female

DRUGS (13)
  1. LIPITOR [Suspect]
     Dosage: 20 MG, UNK
  2. CELEBREX [Suspect]
     Indication: ARTHRITIS
     Dosage: 200 MG, UNK
  3. CELEBREX [Suspect]
     Dosage: 200 MG, 2X/DAY
     Dates: start: 20090724
  4. NORVASC [Suspect]
     Dosage: 10 MG, UNK
  5. TRAZODONE HYDROCHLORIDE [Suspect]
     Dosage: 150 MG, UNK
  6. FUROSEMIDE [Suspect]
     Dosage: 20 MG, UNK
  7. HYDROCODONE HYDROCHLORIDE [Suspect]
     Dosage: 7.5 UNK, 4X/DAY
  8. PROZAC [Suspect]
     Dosage: UNK
  9. MIRAPEX [Suspect]
     Dosage: UNK
  10. CORTICOSTEROIDS [Suspect]
     Indication: BACK DISORDER
     Dosage: UNK
  11. VITAMIN D [Suspect]
     Dosage: UNK
  12. ACETYLSALICYLIC ACID [Suspect]
     Dosage: UNK
  13. VERAPAMIL [Suspect]
     Dosage: 240 MG, UNK

REACTIONS (8)
  - AORTIC STENOSIS [None]
  - CARDIAC FAILURE [None]
  - DEATH [None]
  - DEPRESSION [None]
  - HYPERTENSION [None]
  - INTERVERTEBRAL DISC DEGENERATION [None]
  - LIPIDS ABNORMAL [None]
  - RESTLESS LEGS SYNDROME [None]
